FAERS Safety Report 4651915-0 (Version None)
Quarter: 2005Q2

REPORT INFORMATION
  Report Type: 
  Country: None (occurrence: None)
  Receive Date: 20050502
  Receipt Date: 20050419
  Transmission Date: 20051028
  Serious: Yes (Hospitalization, Disabling)
  Sender: FDA-Public Use
  Company Number: HQWYE167920APR05

PATIENT
  Age: 72 Year
  Sex: Female
  Weight: 74.91 kg

DRUGS (2)
  1. PREMARIN [Suspect]
     Indication: HORMONE REPLACEMENT THERAPY
     Dosage: 0.625 MG 1X PER 1 DAY, ORAL
     Route: 048
     Dates: start: 19810901, end: 20050201
  2. ASPIRIN [Concomitant]

REACTIONS (5)
  - CEREBROVASCULAR ACCIDENT [None]
  - DEAFNESS PERMANENT [None]
  - DEAFNESS UNILATERAL [None]
  - FLUID RETENTION [None]
  - GAIT DISTURBANCE [None]
